FAERS Safety Report 8507298-9 (Version None)
Quarter: 2012Q3

REPORT INFORMATION
  Report Type: 
  Country: None (occurrence: None)
  Receive Date: 20120712
  Receipt Date: 20120706
  Transmission Date: 20120928
  Serious: Yes (Other)
  Sender: FDA-Public Use
  Company Number: DE-ROCHE-1085672

PATIENT
  Age: 79 Year
  Sex: Female
  Weight: 63 kg

DRUGS (11)
  1. MIRCERA [Suspect]
     Indication: NEPHROGENIC ANAEMIA
     Route: 058
     Dates: start: 20090207, end: 20090512
  2. MIRCERA [Suspect]
     Route: 058
     Dates: start: 20090808
  3. DARBEPOETIN ALFA [Suspect]
     Route: 042
     Dates: start: 20081209, end: 20081201
  4. RAMIPRIL [Concomitant]
     Indication: HYPERTENSION
  5. INSULIN [Concomitant]
     Indication: DIABETES MELLITUS
  6. FERRLECIT [Concomitant]
     Indication: THERAPEUTIC PROCEDURE
     Route: 042
  7. DARBEPOETIN ALFA [Suspect]
     Indication: NEPHROGENIC ANAEMIA
     Route: 042
     Dates: start: 20070201, end: 20081101
  8. DARBEPOETIN ALFA [Suspect]
     Route: 042
     Dates: start: 20090113
  9. MIRCERA [Suspect]
     Route: 058
     Dates: start: 20090709, end: 20090701
  10. DARBEPOETIN ALFA [Suspect]
     Route: 042
     Dates: start: 20081101, end: 20081101
  11. BISOPROLOL FUMARATE [Concomitant]
     Indication: HYPERTENSION

REACTIONS (2)
  - INFLAMMATION [None]
  - DIVERTICULITIS [None]
